FAERS Safety Report 7002416-6 (Version None)
Quarter: 2010Q3

REPORT INFORMATION
  Report Type: 
  Country: None (occurrence: None)
  Receive Date: 20100920
  Receipt Date: 20090902
  Transmission Date: 20110219
  Serious: No
  Sender: FDA-Public Use
  Company Number: US-ASTRAZENECA-2009SE11395

PATIENT
  Age: 42 Year
  Sex: Male
  Weight: 71.7 kg

DRUGS (3)
  1. SEROQUEL [Suspect]
     Route: 048
  2. AMBIEN [Concomitant]
  3. TOPICAL TESTOSTERONE [Concomitant]

REACTIONS (3)
  - ACNE [None]
  - PYODERMA [None]
  - RASH [None]
